FAERS Safety Report 7594898-6 (Version None)
Quarter: 2011Q2

REPORT INFORMATION
  Report Type: 
  Country: None (occurrence: None)
  Receive Date: 20110615
  Receipt Date: 20110120
  Transmission Date: 20111010
  Serious: Yes (Hospitalization)
  Sender: FDA-Public Use
  Company Number: WAES 1101USA02072

PATIENT
  Age: 84 Year
  Sex: Female

DRUGS (1)
  1. COZAAR [Suspect]
     Dosage: PO
     Route: 048

REACTIONS (1)
  - ANXIETY [None]
